FAERS Safety Report 8464878-7 (Version None)
Quarter: 2012Q2

REPORT INFORMATION
  Report Type: 
  Country: None (occurrence: None)
  Receive Date: 20120626
  Receipt Date: 20120612
  Transmission Date: 20120825
  Serious: Yes (Hospitalization)
  Sender: FDA-Public Use
  Company Number: US-ELI_LILLY_AND_COMPANY-US201204004257

PATIENT
  Sex: Female
  Weight: 73.469 kg

DRUGS (8)
  1. EFFEXOR XR [Concomitant]
     Dosage: 37.5 MG, BID
  2. WELLBUTRIN [Concomitant]
  3. ATIVAN [Concomitant]
     Dosage: 0.5 MG, PRN
  4. LEXAPRO [Concomitant]
  5. SEASONALE [Concomitant]
     Dosage: 1 DF, QD
  6. HUMALOG [Suspect]
     Dosage: UNK, PRN
  7. HUMALOG [Suspect]
     Indication: TYPE 1 DIABETES MELLITUS
     Dosage: UNK, PRN
     Route: 058
     Dates: start: 20110810
  8. AMBIEN [Concomitant]
     Dosage: UNK, PRN

REACTIONS (4)
  - SUICIDE ATTEMPT [None]
  - DIABETIC KETOACIDOSIS [None]
  - INCORRECT DOSE ADMINISTERED [None]
  - OFF LABEL USE [None]
